FAERS Safety Report 6066994-6 (Version None)
Quarter: 2009Q1

REPORT INFORMATION
  Report Type: 
  Country: None (occurrence: None)
  Receive Date: 20090205
  Receipt Date: 20090203
  Transmission Date: 20090719
  Serious: Yes (Hospitalization)
  Sender: FDA-Public Use
  Company Number: AU-BRISTOL-MYERS SQUIBB COMPANY-14482608

PATIENT
  Age: 46 Year
  Sex: Male
  Weight: 62 kg

DRUGS (4)
  1. BLINDED: BRIVANIB ALANINATE [Suspect]
     Indication: COLORECTAL CANCER METASTATIC
     Dosage: INTERRUPTED ON 07-JAN-2009 RESTARTED ON 10JAN2009.
     Route: 048
     Dates: start: 20080612
  2. CETUXIMAB [Suspect]
     Indication: COLORECTAL CANCER METASTATIC
     Dosage: INTERRUPTED ON 31-DEC-2008
     Route: 042
     Dates: start: 20080612
  3. BLINDED: PLACEBO [Suspect]
     Indication: COLORECTAL CANCER METASTATIC
     Route: 048
     Dates: end: 20090107
  4. PROMETHAZINE [Concomitant]
     Dosage: INTERRUPTED ON 31-DEC-2008
     Route: 048
     Dates: start: 20080612

REACTIONS (2)
  - DEHYDRATION [None]
  - HYPERBILIRUBINAEMIA [None]
